FAERS Safety Report 4293047-X (Version None)
Quarter: 2004Q1

REPORT INFORMATION
  Report Type: 
  Country: None (occurrence: None)
  Receive Date: 20040212
  Receipt Date: 20010222
  Transmission Date: 20041129
  Serious: No
  Sender: FDA-Public Use
  Company Number: US-GLAXOSMITHKLINE-A0344277A

PATIENT
  Age: 68 Year
  Sex: Female
  Weight: 77.1 kg

DRUGS (7)
  1. PAXIL [Suspect]
     Indication: ANXIETY
     Route: 048
     Dates: start: 20010125, end: 20030127
  2. PAXIL [Suspect]
     Dosage: 12.5MG PER DAY
     Route: 048
     Dates: start: 20030128
  3. WELCHOL [Concomitant]
  4. ALLERGY SHOTS [Concomitant]
  5. TRICOR [Concomitant]
     Dosage: 200MG PER DAY
  6. LIPITOR [Concomitant]
     Indication: BLOOD CHOLESTEROL INCREASED
     Route: 065
  7. FOLIC ACID [Concomitant]
     Route: 065

REACTIONS (8)
  - COUGH [None]
  - DIZZINESS [None]
  - FATIGUE [None]
  - GASTROOESOPHAGEAL REFLUX DISEASE [None]
  - PARANASAL SINUS HYPERSECRETION [None]
  - SNEEZING [None]
  - SOMNOLENCE [None]
  - WEIGHT INCREASED [None]
